FAERS Safety Report 20565021 (Version 1)
Quarter: 2022Q1

REPORT INFORMATION
  Report Type: Spontaneous
  Country: US (occurrence: None)
  Receive Date: 20220308
  Receipt Date: 20220308
  Transmission Date: 20220424
  Serious: Yes (Life-Threatening, Hospitalization, Other)
  Sender: FDA-Public Use
  Company Number: US-MLMSERVICE-20220216-3378603-1

PATIENT
  Age: 46 Year
  Sex: Female

DRUGS (2)
  1. PROPOFOL [Suspect]
     Active Substance: PROPOFOL
     Indication: Product used for unknown indication
     Route: 041
  2. PROPOFOL [Suspect]
     Active Substance: PROPOFOL
     Dosage: UP TO 50 MCG/KG/MIN
     Route: 041

REACTIONS (6)
  - Hyperkalaemia [Recovering/Resolving]
  - Hepatic necrosis [Recovering/Resolving]
  - Lactic acidosis [Recovering/Resolving]
  - Rhabdomyolysis [Recovering/Resolving]
  - Right ventricular dysfunction [Recovering/Resolving]
  - Propofol infusion syndrome [Recovering/Resolving]
